FAERS Safety Report 9107953 (Version 3)
Quarter: 2013Q1

REPORT INFORMATION
  Report Type: Spontaneous
  Country: ES (occurrence: ES)
  Receive Date: 20130221
  Receipt Date: 20130311
  Transmission Date: 20140127
  Serious: Yes (Other)
  Sender: FDA-Public Use
  Company Number: ES-PFIZER INC-2013064639

PATIENT
  Age: 83 Year
  Sex: Male

DRUGS (5)
  1. TAZOCEL [Suspect]
     Indication: POSTOPERATIVE WOUND INFECTION
     Dosage: 4 G, 3X/DAY
     Route: 042
     Dates: start: 20091024, end: 20091122
  2. METAMIZOLE [Suspect]
     Indication: PAIN
     Dosage: 2 G, 4X/DAY
     Route: 042
     Dates: start: 20091113, end: 20091121
  3. PANTOPRAZOLE [Concomitant]
     Indication: PROPHYLAXIS AGAINST GASTROINTESTINAL ULCER
     Dosage: 40 MG, 2X/DAY
     Route: 042
     Dates: start: 20091106, end: 20091127
  4. FUROSEMIDE [Concomitant]
     Indication: CARDIAC FAILURE
  5. NIFEDIPINE [Concomitant]
     Indication: HYPERTENSION

REACTIONS (1)
  - Drug reaction with eosinophilia and systemic symptoms [Recovered/Resolved]
